FAERS Safety Report 5705998-7 (Version None)
Quarter: 2008Q2

REPORT INFORMATION
  Report Type: 
  Country: None (occurrence: None)
  Receive Date: 20080411
  Receipt Date: 20080326
  Transmission Date: 20081010
  Serious: Yes (Other)
  Sender: FDA-Public Use
  Company Number: TRP_01053_2008

PATIENT
  Sex: Male
  Weight: 190 kg

DRUGS (13)
  1. INFERGEN/INTERFERON ALFACON-1/VALEANT 15 MCG [Suspect]
     Indication: HEPATITIS C
     Dosage: 15 ?G QD SUBCUTANEOUS
     Route: 058
     Dates: start: 20080125, end: 20080204
  2. RIBAVIRIN [Suspect]
     Indication: HEPATITIS C
     Dosage: 600 MG BID ORAL
     Route: 048
     Dates: start: 20080125, end: 20080204
  3. DIOVAN [Concomitant]
  4. VERAPAMIL [Concomitant]
  5. ASPIRIN [Concomitant]
  6. URACIL [Concomitant]
  7. ALLOPURINOL [Concomitant]
  8. METOPROLOL TARTRATE [Concomitant]
  9. SPIRIVA [Concomitant]
  10. HYDROCHLOROTHIAZIDE [Concomitant]
  11. ADVIL [Concomitant]
  12. PROAIR HFA [Concomitant]
  13. ADVAIR HFA [Concomitant]

REACTIONS (5)
  - BLOOD POTASSIUM DECREASED [None]
  - DYSPNOEA [None]
  - MEMORY IMPAIRMENT [None]
  - PARAESTHESIA [None]
  - PRURITUS [None]
